FAERS Safety Report 23354021 (Version 1)
Quarter: 2024Q1

REPORT INFORMATION
  Report Type: Spontaneous
  Country: IN (occurrence: IN)
  Receive Date: 20240101
  Receipt Date: 20240101
  Transmission Date: 20240410
  Serious: Yes (Hospitalization)
  Sender: FDA-Public Use
  Company Number: IN-BAYER-2023A184740

PATIENT
  Age: 83 Year

DRUGS (2)
  1. EYLEA [Suspect]
     Active Substance: AFLIBERCEPT
     Indication: Product used for unknown indication
     Dosage: UNK UNK, ONCE, SOLUTION FOR INJECTION, 40MG/ML
     Dates: start: 20231018, end: 20231018
  2. EYLEA [Suspect]
     Active Substance: AFLIBERCEPT
     Dosage: UNK, SOLUTION FOR INJECTION, 40MG/ML
     Dates: start: 20231213

REACTIONS (5)
  - Procedural complication [Unknown]
  - Nasopharyngitis [Unknown]
  - Cough [Unknown]
  - Asthma [Unknown]
  - Therapy interrupted [Unknown]

NARRATIVE: CASE EVENT DATE: 20231213
